FAERS Safety Report 9325171 (Version 1)
Quarter: 2013Q2

REPORT INFORMATION
  Report Type: Spontaneous
  Country: FR (occurrence: FR)
  Receive Date: 20130604
  Receipt Date: 20130604
  Transmission Date: 20140414
  Serious: Yes (Other)
  Sender: FDA-Public Use
  Company Number: FR-B.I. PHARMACEUTICALS,INC./RIDGEFIELD-2013-BI-15287GD

PATIENT
  Age: 84 Year
  Sex: Male

DRUGS (1)
  1. PRAMIPEXOLE [Suspect]
     Indication: RESTLESS LEGS SYNDROME
     Dosage: 0.7 MG

REACTIONS (4)
  - Major depression [Unknown]
  - Drug withdrawal syndrome [Unknown]
  - Impulse-control disorder [Unknown]
  - Condition aggravated [Unknown]
